FAERS Safety Report 7290441-X (Version None)
Quarter: 2011Q1

REPORT INFORMATION
  Report Type: 
  Country: None (occurrence: None)
  Receive Date: 20110214
  Receipt Date: 20110209
  Transmission Date: 20110831
  Serious: No
  Sender: FDA-Public Use
  Company Number: US-PFIZER INC-2009185229

PATIENT
  Sex: Female
  Weight: 62.132 kg

DRUGS (10)
  1. PROMETRIUM [Concomitant]
     Dosage: UNK
  2. ESTRADIOL [Concomitant]
     Dosage: UNK
  3. TRAZODONE [Concomitant]
     Dosage: UNK
  4. TYLENOL [Concomitant]
  5. GABAPENTIN [Concomitant]
     Dosage: UNK
  6. THYROID TAB [Concomitant]
     Dosage: UNK
  7. CORTEF [Suspect]
     Indication: ADRENAL DISORDER
     Dosage: UNKNOWN DOSE 2X/DAY
     Route: 048
     Dates: start: 19991201, end: 20110102
  8. CORTEF [Suspect]
     Dosage: 5 MG, 2X/DAY
     Route: 048
     Dates: start: 20110103, end: 20110124
  9. ARICEPT [Concomitant]
     Dosage: UNK
  10. ALEVE [Concomitant]
     Dosage: UNK

REACTIONS (4)
  - DRUG INEFFECTIVE [None]
  - DYSGEUSIA [None]
  - FEELING ABNORMAL [None]
  - WRONG TECHNIQUE IN DRUG USAGE PROCESS [None]
